FAERS Safety Report 10396626 (Version 1)
Quarter: 2014Q1

REPORT INFORMATION
  Report Type: Spontaneous
  Country: US (occurrence: None)
  Receive Date: 20130815
  Receipt Date: 20130815
  Transmission Date: 20141002
  Serious: Yes (Hospitalization, Other)
  Sender: FDA-Public Use
  Company Number: ADR-2012-01176

PATIENT
  Sex: Female

DRUGS (1)
  1. LIORESAL INTRATHECAL (BACLOFEN INJECTION)2000 MCG/ML [Suspect]
     Indication: MUSCLE SPASTICITY

REACTIONS (12)
  - Confusional state [None]
  - Musculoskeletal stiffness [None]
  - Muscle spasms [None]
  - Hypertension [None]
  - Drug withdrawal syndrome [None]
  - Pyrexia [None]
  - Nausea [None]
  - Dyspepsia [None]
  - Tremor [None]
  - Malaise [None]
  - Tachycardia [None]
  - No therapeutic response [None]
